FAERS Safety Report 10743296 (Version 3)
Quarter: 2015Q2

REPORT INFORMATION
  Report Type: Report from Study
  Country: MX (occurrence: MX)
  Receive Date: 20150127
  Receipt Date: 20150624
  Transmission Date: 20150821
  Serious: Yes (Other)
  Sender: FDA-Public Use
  Company Number: PHHY2015MX009256

PATIENT
  Sex: Female

DRUGS (9)
  1. DIOVAN [Suspect]
     Active Substance: VALSARTAN
     Dosage: 2 DF, QD
     Route: 065
  2. DIOVAN [Suspect]
     Active Substance: VALSARTAN
     Dosage: 160 MG, (1 DF 160 MG OR 2 DF OF 80 MG (1 IN MORNING AND 1 IN NIGHT)
     Route: 065
  3. RIVOTRIL [Concomitant]
     Active Substance: CLONAZEPAM
     Indication: ANXIOLYTIC THERAPY
     Dosage: 2 TO 3 DF, UNK
     Route: 065
  4. LEXAPRO [Concomitant]
     Active Substance: ESCITALOPRAM OXALATE
     Indication: ANTIDEPRESSANT THERAPY
     Dosage: 1 DF, QD
     Route: 065
  5. LOBIVON [Concomitant]
     Active Substance: NEBIVOLOL HYDROCHLORIDE
     Indication: TACHYCARDIA
     Dosage: 1 DF (10 MG), QD
     Route: 065
  6. DIOVAN [Suspect]
     Active Substance: VALSARTAN
     Indication: BLOOD PRESSURE INCREASED
     Dosage: 80 MG, BID (ONE IN THE MORNING AND ONE IN THE NIGHT, 8 MONTHS AGO STARTED)
  7. DIOVAN [Suspect]
     Active Substance: VALSARTAN
     Dosage: 80 MG IN NIGHT
     Route: 065
  8. LOBIVON [Concomitant]
     Active Substance: NEBIVOLOL HYDROCHLORIDE
     Dosage: 0.5 DF (5 MG), UNK
  9. ADVIL [Concomitant]
     Active Substance: IBUPROFEN
     Indication: OSTEOARTHRITIS
     Dosage: 2 DF, QD
     Route: 065

REACTIONS (5)
  - Blood pressure increased [Not Recovered/Not Resolved]
  - Chondropathy [Not Recovered/Not Resolved]
  - Peripheral swelling [Unknown]
  - Dizziness [Not Recovered/Not Resolved]
  - Blood pressure decreased [Unknown]
